FAERS Safety Report 8059821-9 (Version None)
Quarter: 2012Q1

REPORT INFORMATION
  Report Type: 
  Country: None (occurrence: None)
  Receive Date: 20120119
  Receipt Date: 20120119
  Transmission Date: 20120608
  Serious: Yes (Hospitalization)
  Sender: FDA-Public Use
  Company Number: None

PATIENT
  Age: 84 Year
  Sex: Male
  Weight: 76.6 kg

DRUGS (7)
  1. MAG OX [Concomitant]
  2. AMIODARONE HCL [Suspect]
     Indication: CARDIAC FAILURE CONGESTIVE
     Dosage: 400MG DAILY PO RECENT
     Route: 048
  3. VITAMIN B-12 [Concomitant]
  4. SIMVASTATIN [Concomitant]
  5. LASIX [Concomitant]
  6. COUMADIN [Suspect]
     Indication: ATRIAL FIBRILLATION
     Dosage: 7.5MG DAILY PO RECENT W/RECENT INCREASE
  7. ASPIRIN [Suspect]
     Dosage: 81MG PO DAILY
     Route: 048

REACTIONS (7)
  - INTERNATIONAL NORMALISED RATIO INCREASED [None]
  - BRADYCARDIA [None]
  - EPISTAXIS [None]
  - RENAL FAILURE ACUTE [None]
  - HAEMATURIA [None]
  - DRUG INTERACTION [None]
  - COAGULOPATHY [None]
